FAERS Safety Report 8487974-7 (Version None)
Quarter: 2012Q3

REPORT INFORMATION
  Report Type: 
  Country: None (occurrence: None)
  Receive Date: 20120705
  Receipt Date: 20120702
  Transmission Date: 20120928
  Serious: Yes (Other)
  Sender: FDA-Public Use
  Company Number: IT-SANOFI-AVENTIS-2012SA046774

PATIENT
  Age: 54 Year
  Sex: Female

DRUGS (4)
  1. ARAVA [Suspect]
     Indication: PSORIATIC ARTHROPATHY
     Route: 048
     Dates: start: 20050101, end: 20120410
  2. LISINOPRIL AND HYDROCHLOROTHIAZIDE [Concomitant]
  3. VITAMIN D [Concomitant]
  4. HUMIRA [Concomitant]

REACTIONS (1)
  - ORAL LICHEN PLANUS [None]
